FAERS Safety Report 9851284 (Version 2)
Quarter: 2014Q2

REPORT INFORMATION
  Report Type: Report from Study
  Country: RU (occurrence: RU)
  Receive Date: 20140128
  Receipt Date: 20140521
  Transmission Date: 20141212
  Serious: Yes (Other)
  Sender: FDA-Public Use
  Company Number: RU-ROCHE-1340752

PATIENT
  Age: 64 Year
  Sex: Female
  Weight: 77 kg

DRUGS (4)
  1. AVASTIN [Suspect]
     Indication: RECTAL CANCER METASTATIC
     Route: 065
     Dates: start: 20130307
  2. XELODA [Suspect]
     Indication: RECTAL CANCER METASTATIC
     Dosage: FOR 14 DAYS
     Route: 048
     Dates: start: 20130307
  3. OXALIPLATIN [Concomitant]
     Indication: RECTAL CANCER METASTATIC
     Route: 042
     Dates: start: 20130307, end: 20140114
  4. MITOMYCIN [Concomitant]
     Indication: RECTAL CANCER METASTATIC
     Dosage: 1ST, 8TH AND 15TH DAYS OF THE TREATMENT CYCLE
     Route: 042
     Dates: start: 20140114

REACTIONS (1)
  - Disease progression [Not Recovered/Not Resolved]
